FAERS Safety Report 6277946-5 (Version None)
Quarter: 2009Q3

REPORT INFORMATION
  Report Type: 
  Country: None (occurrence: None)
  Receive Date: 20090720
  Receipt Date: 20090709
  Transmission Date: 20100115
  Serious: Yes (Other)
  Sender: FDA-Public Use
  Company Number: ADR6672009 (ARROW LOG NO: 2009AG0190)

PATIENT
  Age: 43 Year
  Sex: Male

DRUGS (2)
  1. PRAVASTATIN [Suspect]
  2. ATORVASTATIN [Concomitant]

REACTIONS (2)
  - DIPLOPIA [None]
  - MYASTHENIA GRAVIS [None]
